FAERS Safety Report 7527199-2 (Version None)
Quarter: 2011Q2

REPORT INFORMATION
  Report Type: 
  Country: None (occurrence: None)
  Receive Date: 20110607
  Receipt Date: 20110531
  Transmission Date: 20111010
  Serious: No
  Sender: FDA-Public Use
  Company Number: US-BIOGENIDEC-2011BI020173

PATIENT
  Sex: Female

DRUGS (5)
  1. TYSABRI [Suspect]
     Route: 042
     Dates: start: 20080102, end: 20080801
  2. TYSABRI [Suspect]
     Indication: MULTIPLE SCLEROSIS
     Route: 042
     Dates: start: 20101214
  3. TYSABRI [Suspect]
     Route: 042
     Dates: start: 20061102, end: 20070305
  4. TYSABRI [Suspect]
     Route: 042
     Dates: start: 20090507, end: 20090903
  5. AVONEX [Concomitant]
     Indication: MULTIPLE SCLEROSIS
     Route: 030

REACTIONS (6)
  - VISUAL IMPAIRMENT [None]
  - DEPRESSION [None]
  - GLAUCOMA [None]
  - HYPOAESTHESIA [None]
  - DIABETES MELLITUS [None]
  - MEMORY IMPAIRMENT [None]
